FAERS Safety Report 12726899 (Version 1)
Quarter: 2016Q3

REPORT INFORMATION
  Report Type: Spontaneous
  Country: PE (occurrence: PE)
  Receive Date: 20160908
  Receipt Date: 20160908
  Transmission Date: 20161109
  Serious: Yes (Hospitalization)
  Sender: FDA-Public Use
  Company Number: PE-ROCHE-1827937

PATIENT
  Sex: Female

DRUGS (1)
  1. PULMOZYME [Suspect]
     Active Substance: DORNASE ALFA
     Indication: CYSTIC FIBROSIS
     Route: 065
     Dates: start: 201608

REACTIONS (3)
  - Malnutrition [Recovering/Resolving]
  - Sepsis [Recovering/Resolving]
  - Pneumonia [Recovering/Resolving]
